FAERS Safety Report 8594749-7 (Version None)
Quarter: 2012Q3

REPORT INFORMATION
  Report Type: 
  Country: None (occurrence: None)
  Receive Date: 20120815
  Receipt Date: 20120801
  Transmission Date: 20120928
  Serious: Yes (Death, Hospitalization)
  Sender: FDA-Public Use
  Company Number: GB-MYLANLABS-2012S1015799

PATIENT
  Age: 47 Year
  Sex: Male
  Weight: 102 kg

DRUGS (4)
  1. MORPHINE [Concomitant]
     Indication: PRODUCT USED FOR UNKNOWN INDICATION
  2. OLANZAPINE [Suspect]
     Indication: SCHIZOPHRENIA
     Dates: end: 20111128
  3. ZYPREXA [Suspect]
     Indication: SCHIZOPHRENIA
     Route: 030
  4. OLANZAPINE [Suspect]
     Route: 048
     Dates: start: 20111130

REACTIONS (6)
  - SYSTEMIC CANDIDA [None]
  - MEGACOLON [None]
  - CONFUSIONAL STATE [None]
  - SHOCK [None]
  - INCORRECT DRUG ADMINISTRATION DURATION [None]
  - MULTI-ORGAN FAILURE [None]
